FAERS Safety Report 8910001 (Version 1)
Quarter: 2012Q4

REPORT INFORMATION
  Report Type: 
  Country: US (occurrence: US)
  Receive Date: 20121114
  Receipt Date: 20121114
  Transmission Date: 20130627
  Serious: No
  Sender: FDA-Public Use
  Company Number: US-ASTRAZENECA-2012SE83070

PATIENT
  Sex: Male

DRUGS (5)
  1. NEXIUM [Suspect]
     Indication: THROAT IRRITATION
     Route: 048
     Dates: start: 20121026
  2. FOLIC ACID [Concomitant]
  3. CALCITONIN [Concomitant]
  4. SIMVISTATIN [Concomitant]
  5. VITAMIN D [Concomitant]

REACTIONS (2)
  - Throat irritation [Unknown]
  - Drug ineffective for unapproved indication [Unknown]
